FAERS Safety Report 26062420 (Version 2)
Quarter: 2025Q4

REPORT INFORMATION
  Report Type: Report from Study
  Country: US (occurrence: US)
  Receive Date: 20251119
  Receipt Date: 20251225
  Transmission Date: 20260118
  Serious: Yes (Other)
  Sender: ABBVIE
  Company Number: US-ABBVIE-6547590

PATIENT
  Sex: Female

DRUGS (1)
  1. RINVOQ [Suspect]
     Active Substance: UPADACITINIB
     Indication: Rheumatoid arthritis
     Route: 048
     Dates: start: 20241021

REACTIONS (5)
  - Nephrolithiasis [Unknown]
  - Nephrolithiasis [Unknown]
  - Fall [Unknown]
  - Musculoskeletal chest pain [Unknown]
  - Cough [Recovered/Resolved]
